FAERS Safety Report 9441772 (Version 3)
Quarter: 2013Q3

REPORT INFORMATION
  Report Type: Report from Study
  Country: AU (occurrence: AU)
  Receive Date: 20130806
  Receipt Date: 20130913
  Transmission Date: 20140515
  Serious: Yes (Other)
  Sender: FDA-Public Use
  Company Number: AU-ASTRAZENECA-2013SE56048

PATIENT
  Age: 78 Year
  Sex: Male

DRUGS (11)
  1. ZOLADEX [Suspect]
     Indication: PROSTATE CANCER
     Route: 058
     Dates: start: 200911, end: 201010
  2. ZOLADEX [Suspect]
     Indication: PROSTATE CANCER
     Route: 058
     Dates: start: 201108, end: 201308
  3. CALUTEX [Suspect]
     Indication: PROSTATE CANCER
     Route: 048
     Dates: start: 200911, end: 200912
  4. CALUTEX [Suspect]
     Indication: PROSTATE CANCER
     Route: 048
     Dates: start: 201305, end: 201307
  5. ANDROCUR [Suspect]
     Indication: PROSTATE CANCER
     Dates: start: 201108, end: 201109
  6. ANDROCUR [Suspect]
     Indication: PROSTATE CANCER
     Dates: start: 201307, end: 201308
  7. RADIATION TO THE PROSTATE [Suspect]
     Dates: end: 201003
  8. ACIMAX [Concomitant]
     Route: 048
  9. ARICEPT [Concomitant]
     Route: 048
  10. ARTHRO AID [Concomitant]
     Route: 048
  11. BETAMIN [Concomitant]
     Route: 048

REACTIONS (3)
  - Malignant neoplasm progression [Not Recovered/Not Resolved]
  - Hot flush [Not Recovered/Not Resolved]
  - Loss of libido [Not Recovered/Not Resolved]
